FAERS Safety Report 6084012-0 (Version None)
Quarter: 2009Q1

REPORT INFORMATION
  Report Type: 
  Country: None (occurrence: None)
  Receive Date: 20090219
  Receipt Date: 20081219
  Transmission Date: 20090719
  Serious: Yes (Hospitalization, Other)
  Sender: FDA-Public Use
  Company Number: VE-PFIZER INC-2008157957

PATIENT

DRUGS (4)
  1. CHAMPIX [Suspect]
     Indication: SMOKING CESSATION THERAPY
     Route: 048
     Dates: start: 20081202, end: 20081214
  2. ASCORBIC ACID [Concomitant]
     Dosage: UNK
     Route: 048
     Dates: start: 19880101
  3. VITAMIN E [Concomitant]
     Dosage: UNK
     Route: 048
     Dates: start: 19880101
  4. ALL OTHER THERAPEUTIC PRODUCTS [Concomitant]
     Dosage: UNK
     Route: 048
     Dates: start: 20070101

REACTIONS (2)
  - ASPHYXIA [None]
  - TACHYCARDIA [None]
